FAERS Safety Report 19813058 (Version 1)
Quarter: 2021Q3

REPORT INFORMATION
  Report Type: Spontaneous
  Country: US (occurrence: US)
  Receive Date: 20210909
  Receipt Date: 20210909
  Transmission Date: 20211014
  Serious: Yes (Hospitalization)
  Sender: FDA-Public Use
  Company Number: None

PATIENT
  Age: 54 Year
  Sex: Male
  Weight: 123.75 kg

DRUGS (5)
  1. LISINOPRIL. [Concomitant]
     Active Substance: LISINOPRIL
     Dates: start: 20060404
  2. ATORVASTATIN [Concomitant]
     Active Substance: ATORVASTATIN
     Dates: start: 20200127
  3. METOPROLOL ER [Concomitant]
     Active Substance: METOPROLOL SUCCINATE
     Dates: start: 20171206
  4. CASIRIVIMAB?IMDEVIMAB [Suspect]
     Active Substance: CASIRIVIMAB\IMDEVIMAB
     Indication: COVID-19
     Dosage: ?          OTHER FREQUENCY:ONCE;?
     Route: 041
     Dates: start: 20210901, end: 20210901
  5. CHOLECALCIFEROL, VITAMIN D3 [Concomitant]
     Dates: start: 20140305

REACTIONS (13)
  - Hyponatraemia [None]
  - Pneumonia [None]
  - C-reactive protein increased [None]
  - Oxygen saturation decreased [None]
  - Leukocytosis [None]
  - Dyspnoea exertional [None]
  - Illness [None]
  - Dyspnoea [None]
  - Cough [None]
  - Pulmonary congestion [None]
  - Headache [None]
  - COVID-19 [None]
  - Appetite disorder [None]

NARRATIVE: CASE EVENT DATE: 20210902
